FAERS Safety Report 19888897 (Version 5)
Quarter: 2021Q4

REPORT INFORMATION
  Report Type: Report from Study
  Country: DE (occurrence: DE)
  Receive Date: 20210927
  Receipt Date: 20211104
  Transmission Date: 20220303
  Serious: Yes (Death)
  Sender: FDA-Public Use
  Company Number: DE-BAYER-2021A215245

PATIENT

DRUGS (3)
  1. EYLEA [Suspect]
     Active Substance: AFLIBERCEPT
     Indication: Neovascular age-related macular degeneration
     Dosage: 50 MICROL, REGULAR PLANNED
  2. EYLEA [Suspect]
     Active Substance: AFLIBERCEPT
     Dosage: 50 MICROL, REGULAR INJECTION RIGHT EYE
     Route: 031
     Dates: start: 20200805
  3. EYLEA [Suspect]
     Active Substance: AFLIBERCEPT
     Dosage: 50 MICROL, REGULAR INJECTION RIGHT EYE
     Dates: start: 20200930

REACTIONS (1)
  - Death [Fatal]

NARRATIVE: CASE EVENT DATE: 20201231
